FAERS Safety Report 24257497 (Version 1)
Quarter: 2024Q3

REPORT INFORMATION
  Report Type: Spontaneous
  Country: AU (occurrence: AU)
  Receive Date: 20240828
  Receipt Date: 20240828
  Transmission Date: 20241016
  Serious: Yes (Hospitalization, Other)
  Sender: CSL BEHRING
  Company Number: AU-BEH-2024176622

PATIENT
  Age: 83 Year
  Sex: Male
  Weight: 96.3 kg

DRUGS (11)
  1. HUMAN IMMUNOGLOBULIN G [Suspect]
     Active Substance: HUMAN IMMUNOGLOBULIN G
     Dosage: 20 G, AS PER PRODUCT PROTOCOL INCREASING INCREMENTS
     Route: 042
     Dates: start: 20240726, end: 20240726
  2. ACALABRUTINIB [Concomitant]
     Active Substance: ACALABRUTINIB
     Indication: Chronic lymphocytic leukaemia
     Dosage: UNK, BID
  3. XARELTO [Concomitant]
     Active Substance: RIVAROXABAN
  4. GLICLAZIDE [Concomitant]
     Active Substance: GLICLAZIDE
  5. SAXAGLIPTIN [Concomitant]
     Active Substance: SAXAGLIPTIN
  6. BACTRIM [Concomitant]
     Active Substance: SULFAMETHOXAZOLE\TRIMETHOPRIM
     Dosage: UNK, BIW
  7. ROSUVASTATIN AN [Concomitant]
  8. VALTREX [Concomitant]
     Active Substance: VALACYCLOVIR HYDROCHLORIDE
     Dosage: UNK, BID
  9. Optisulin [Concomitant]
     Dosage: UNK, BID
  10. PANTOPRAZOLE SXP [Concomitant]
  11. METOPROLOL [Concomitant]
     Active Substance: METOPROLOL
     Dosage: UNK, BID

REACTIONS (12)
  - Drug hypersensitivity [Recovering/Resolving]
  - Gastrointestinal haemorrhage [Unknown]
  - Pneumonia [Unknown]
  - Pulmonary oedema [Unknown]
  - Sepsis [Unknown]
  - Wheezing [Recovering/Resolving]
  - Dyspnoea [Recovering/Resolving]
  - Respiratory rate increased [Recovering/Resolving]
  - Tachycardia [Recovering/Resolving]
  - Chills [Recovering/Resolving]
  - Hypotension [Unknown]
  - Infective exacerbation of bronchiectasis [Unknown]

NARRATIVE: CASE EVENT DATE: 20240726
